FAERS Safety Report 8862547 (Version 1)
Quarter: 2012Q4

REPORT INFORMATION
  Report Type: 
  Country: CN (occurrence: CN)
  Receive Date: 20121026
  Receipt Date: 20121026
  Transmission Date: 20130627
  Serious: Yes (Other)
  Sender: FDA-Public Use
  Company Number: CN-JNJFOC-20121012993

PATIENT

DRUGS (5)
  1. XARELTO [Suspect]
     Indication: THROMBOSIS PROPHYLAXIS
     Route: 048
     Dates: start: 20120916, end: 20120918
  2. XARELTO [Suspect]
     Indication: HIP ARTHROPLASTY
     Route: 048
     Dates: start: 20120916, end: 20120918
  3. MOBIC [Concomitant]
     Route: 065
  4. CEFTEZOLE SODIUM [Concomitant]
     Route: 065
  5. CLINDAMYCIN [Concomitant]
     Route: 065

REACTIONS (3)
  - Wound drainage [Unknown]
  - Wound haemorrhage [Unknown]
  - Ecchymosis [Recovering/Resolving]
